FAERS Safety Report 16881944 (Version 1)
Quarter: 2019Q4

REPORT INFORMATION
  Report Type: Spontaneous
  Country: US (occurrence: US)
  Receive Date: 20191003
  Receipt Date: 20191003
  Transmission Date: 20200122
  Serious: Yes (Hospitalization)
  Sender: FDA-Public Use
  Company Number: US-TEVA-2019-US-1115797

PATIENT
  Sex: Female

DRUGS (4)
  1. ALDACTONE [Concomitant]
     Active Substance: SPIRONOLACTONE
     Route: 065
  2. LISINOPRIL. [Concomitant]
     Active Substance: LISINOPRIL
     Route: 065
  3. CLONIDINE TDS [Suspect]
     Active Substance: CLONIDINE
     Indication: HYPERTENSION
     Dosage: APPLYING ONE 0.2 MG PATCH TO BOTH ARMS WEEKLY
     Route: 062
     Dates: start: 201907
  4. CARVEDILOL. [Concomitant]
     Active Substance: CARVEDILOL
     Route: 065

REACTIONS (5)
  - Wrong technique in product usage process [Unknown]
  - Application site irritation [Unknown]
  - Loss of consciousness [Unknown]
  - Visual impairment [Unknown]
  - Lack of application site rotation [Unknown]
